FAERS Safety Report 9166083 (Version 1)
Quarter: 2013Q1

REPORT INFORMATION
  Report Type: Spontaneous
  Country: BR (occurrence: BR)
  Receive Date: 20130315
  Receipt Date: 20130315
  Transmission Date: 20140127
  Serious: Yes (Hospitalization)
  Sender: FDA-Public Use
  Company Number: BR-ROCHE-1201672

PATIENT
  Sex: Female

DRUGS (10)
  1. ACTEMRA [Suspect]
     Indication: JUVENILE IDIOPATHIC ARTHRITIS
     Dosage: LAST INFUSION WAS ON 18/JAN/2013
     Route: 042
  2. ACTEMRA [Suspect]
     Route: 042
     Dates: start: 20121219
  3. OSCAL D [Concomitant]
  4. PREDNISONE [Concomitant]
     Route: 065
  5. MELOXICAM [Concomitant]
     Route: 065
  6. METHOTREXATE [Concomitant]
     Route: 065
  7. ALENDRONATE [Concomitant]
  8. FOLIC ACID [Concomitant]
  9. PANTOGAR (AUSTRIA) [Concomitant]
     Indication: ALOPECIA
  10. DOXYCYCLINE [Concomitant]
     Indication: ACNE

REACTIONS (10)
  - Tachycardia [Unknown]
  - Musculoskeletal pain [Unknown]
  - Weight increased [Not Recovered/Not Resolved]
  - Pyrexia [Recovered/Resolved]
  - Pain [Unknown]
  - Leukocytosis [Recovered/Resolved]
  - Fatigue [Unknown]
  - Discomfort [Unknown]
  - Arthralgia [Unknown]
  - Pain in extremity [Unknown]
